FAERS Safety Report 25750052 (Version 1)
Quarter: 2025Q3

REPORT INFORMATION
  Report Type: Spontaneous
  Country: BR (occurrence: BR)
  Receive Date: 20250902
  Receipt Date: 20250902
  Transmission Date: 20251020
  Serious: Yes (Hospitalization, Other)
  Sender: BAYER HEALTHCARE PHARMACEUTICALS INC.
  Company Number: BR-BAYER-2025A111477

PATIENT
  Age: 39 Year
  Sex: Female

DRUGS (1)
  1. GADOBUTROL [Suspect]
     Active Substance: GADOBUTROL
     Indication: Computerised tomogram head
     Route: 042
     Dates: start: 20250813, end: 20250815

REACTIONS (7)
  - Pruritus [Recovered/Resolved]
  - Hyperaemia [Recovered/Resolved]
  - Tachycardia [Recovered/Resolved]
  - Papule [Recovered/Resolved]
  - Depressed level of consciousness [Recovered/Resolved]
  - Hypotension [Recovered/Resolved]
  - Asthenia [Recovered/Resolved]

NARRATIVE: CASE EVENT DATE: 20250813
